FAERS Safety Report 6809588-4 (Version None)
Quarter: 2010Q2

REPORT INFORMATION
  Report Type: 
  Country: None (occurrence: None)
  Receive Date: 20100630
  Receipt Date: 20100623
  Transmission Date: 20101027
  Serious: Yes (Death, Hospitalization, Other)
  Sender: FDA-Public Use
  Company Number: PHHY2010JP19750

PATIENT
  Sex: Male

DRUGS (4)
  1. DIOVAN [Suspect]
     Dosage: 80 MG, QD
     Route: 048
     Dates: start: 20071115, end: 20090520
  2. HERBESSOR R [Concomitant]
     Indication: HYPERTENSION
     Dosage: 200 MG
     Route: 048
     Dates: start: 20060522, end: 20090520
  3. SIGMART [Concomitant]
     Dosage: 15 MG
     Route: 048
     Dates: start: 20060522, end: 20090520
  4. ASPIRIN [Concomitant]
     Dosage: 100 MG
     Route: 048
     Dates: start: 20080214, end: 20090520

REACTIONS (3)
  - BLOOD PRESSURE DIASTOLIC DECREASED [None]
  - PNEUMONIA [None]
  - SEPTIC SHOCK [None]
